FAERS Safety Report 5354628-5 (Version None)
Quarter: 2007Q2

REPORT INFORMATION
  Report Type: 
  Country: None (occurrence: None)
  Receive Date: 20070608
  Receipt Date: 20070525
  Transmission Date: 20071010
  Serious: Yes (Death)
  Sender: FDA-Public Use
  Company Number: ENC200700075

PATIENT
  Age: 61 Year
  Sex: Male

DRUGS (2)
  1. ARGATROBAN [Suspect]
     Indication: HEPARIN-INDUCED THROMBOCYTOPENIA
     Dosage: 0.2 MCG/KG/MIN, INTRAVENOUS
     Route: 011
  2. HEPARIN [Concomitant]

REACTIONS (1)
  - COAGULATION TIME PROLONGED [None]
